FAERS Safety Report 9657618 (Version 2)
Quarter: 2013Q4

REPORT INFORMATION
  Report Type: Spontaneous
  Country: US (occurrence: US)
  Receive Date: 20131030
  Receipt Date: 20131030
  Transmission Date: 20140711
  Serious: Yes (Other)
  Sender: FDA-Public Use
  Company Number: US-NAPPMUNDI-USA-2011-0076065

PATIENT
  Age: 40 Year
  Sex: Male

DRUGS (3)
  1. OXYCONTIN TABLETS [Suspect]
     Indication: PRODUCT USED FOR UNKNOWN INDICATION
     Dosage: UNK
     Dates: start: 1998
  2. METHAMPHETAMINE [Suspect]
     Indication: SUBSTANCE ABUSE
  3. HEROIN [Suspect]
     Indication: SUBSTANCE ABUSE
     Dosage: UNK
     Dates: start: 201110

REACTIONS (2)
  - Drug dependence [Not Recovered/Not Resolved]
  - Substance abuse [Unknown]
